FAERS Safety Report 6456656-5 (Version None)
Quarter: 2009Q4

REPORT INFORMATION
  Report Type: 
  Country: None (occurrence: None)
  Receive Date: 20091125
  Receipt Date: 20091118
  Transmission Date: 20100525
  Serious: Yes (Death, Life-Threatening)
  Sender: FDA-Public Use
  Company Number: JP-BAYER-200913041BYL

PATIENT
  Age: 64 Year
  Sex: Male

DRUGS (11)
  1. NEXAVAR [Suspect]
     Indication: HEPATIC NEOPLASM MALIGNANT
     Dosage: UNIT DOSE: 200 MG
     Route: 048
     Dates: start: 20090706, end: 20090717
  2. NEXAVAR [Suspect]
     Dosage: UNIT DOSE: 200 MG
     Route: 048
     Dates: start: 20091008, end: 20091030
  3. NEXAVAR [Suspect]
     Dosage: UNIT DOSE: 200 MG
     Route: 048
     Dates: start: 20090804, end: 20091006
  4. AMOBAN [Concomitant]
     Route: 048
     Dates: start: 20091029, end: 20091029
  5. BARACLUDE [Concomitant]
     Indication: HEPATITIS B
     Route: 048
     Dates: start: 20090609, end: 20091029
  6. MUCOSTA [Concomitant]
     Indication: PROPHYLAXIS AGAINST GASTROINTESTINAL ULCER
     Dosage: BEFORE NEXAVAR ADMINISTRATION
     Route: 048
     Dates: end: 20091029
  7. URSO 250 [Concomitant]
     Dosage: BEFORE NEXAVAR ADMINISTRATION
     Route: 048
     Dates: end: 20091029
  8. HALFDIGOXIN [Concomitant]
     Indication: ATRIAL FIBRILLATION
     Dosage: BEFORE NEXAVAR ADMINISTRATION
     Route: 048
     Dates: end: 20091029
  9. MOHRUS TAPE [Concomitant]
     Indication: BACK PAIN
     Dosage: BEFORE NEXAVAR ADMINISTRATION
     Route: 062
  10. HYALEIN [Concomitant]
     Indication: KERATOCONJUNCTIVITIS SICCA
     Dosage: SUFFICEINT AMOUNT
     Route: 047
     Dates: start: 20090713, end: 20090804
  11. LASIX [Concomitant]
     Route: 048
     Dates: start: 20091013, end: 20091029

REACTIONS (10)
  - ASCITES [None]
  - BLOOD AMYLASE INCREASED [None]
  - DYSPHONIA [None]
  - HEPATIC ENCEPHALOPATHY [None]
  - HEPATIC FUNCTION ABNORMAL [None]
  - HEPATIC NEOPLASM MALIGNANT [None]
  - HYPOPHOSPHATAEMIA [None]
  - JAUNDICE [None]
  - PYREXIA [None]
  - RASH [None]
